FAERS Safety Report 25460580 (Version 1)
Quarter: 2025Q2

REPORT INFORMATION
  Report Type: Report from Study
  Country: US (occurrence: US)
  Receive Date: 20250620
  Receipt Date: 20250620
  Transmission Date: 20250717
  Serious: Yes (Death, Other)
  Sender: ACADIA PHARMACEUTICALS
  Company Number: US-ACADIA PHARMACEUTICALS INC.-ACA-2025-PIM-007325

PATIENT
  Age: 78 Year
  Sex: Female

DRUGS (14)
  1. NUPLAZID [Suspect]
     Active Substance: PIMAVANSERIN TARTRATE
     Indication: Parkinson^s disease
     Dosage: 34 MILLIGRAM, QD
     Route: 048
  2. CARBIDOPA AND LEVODOPA [Concomitant]
     Active Substance: CARBIDOPA\LEVODOPA
  3. COLCHICINE [Concomitant]
     Active Substance: COLCHICINE
  4. ASPIRIN [Concomitant]
     Active Substance: ASPIRIN
  5. SEROQUEL [Concomitant]
     Active Substance: QUETIAPINE FUMARATE
  6. ESTRADIOL [Concomitant]
     Active Substance: ESTRADIOL
  7. MIRTAZAPINE [Concomitant]
     Active Substance: MIRTAZAPINE
  8. DONEPEZIL [Concomitant]
     Active Substance: DONEPEZIL
  9. VALSARTAN [Concomitant]
     Active Substance: VALSARTAN
  10. BYSTOLIC [Concomitant]
     Active Substance: NEBIVOLOL HYDROCHLORIDE
  11. SODIUM CHLORIDE [Concomitant]
     Active Substance: SODIUM CHLORIDE
  12. PROLIA [Concomitant]
     Active Substance: DENOSUMAB
  13. GEMTESA [Concomitant]
     Active Substance: VIBEGRON
  14. VITAMIN D3 [Concomitant]
     Active Substance: CHOLECALCIFEROL

REACTIONS (1)
  - Death [Fatal]

NARRATIVE: CASE EVENT DATE: 20250617
